FAERS Safety Report 14869468 (Version 1)
Quarter: 2018Q2

REPORT INFORMATION
  Report Type: Report from Study
  Country: FR (occurrence: FR)
  Receive Date: 20180509
  Receipt Date: 20180509
  Transmission Date: 20180711
  Serious: Yes (Other)
  Sender: FDA-Public Use
  Company Number: FR-CHIESI USA INC.-FR-2018CHI000105

PATIENT
  Age: 0 Day
  Sex: Female
  Weight: 1.14 kg

DRUGS (2)
  1. CUROSURF [Suspect]
     Active Substance: PORACTANT ALFA
     Indication: NEONATAL RESPIRATORY DISTRESS SYNDROME
     Dosage: 209 MG/KG, SINGLE
     Route: 007
     Dates: start: 20180304, end: 20180304
  2. KETAMINE [Suspect]
     Active Substance: KETAMINE
     Indication: SEDATION
     Dosage: 0.5 MG/KG, UNK
     Route: 065
     Dates: start: 20180304

REACTIONS (1)
  - Infantile apnoea [Recovered/Resolved]

NARRATIVE: CASE EVENT DATE: 20180304
